FAERS Safety Report 26119987 (Version 2)
Quarter: 2025Q4

REPORT INFORMATION
  Report Type: Spontaneous
  Country: US (occurrence: US)
  Receive Date: 20251204
  Receipt Date: 20251209
  Transmission Date: 20260118
  Serious: Yes (Other)
  Sender: RANBAXY
  Company Number: US-SUN PHARMACEUTICAL INDUSTRIES INC-2025R1-539578

PATIENT
  Age: 11 Year
  Sex: Female
  Weight: 69.3 kg

DRUGS (1)
  1. ALBUTEROL [Suspect]
     Active Substance: ALBUTEROL
     Indication: Dyspnoea
     Dosage: 13.5 MILLIGRAM

REACTIONS (2)
  - Toxicity to various agents [Unknown]
  - Supraventricular tachycardia [Unknown]
